FAERS Safety Report 20910428 (Version 1)
Quarter: 2022Q2

REPORT INFORMATION
  Report Type: Spontaneous
  Country: ES (occurrence: ES)
  Receive Date: 20220603
  Receipt Date: 20220603
  Transmission Date: 20220720
  Serious: Yes (Other)
  Sender: FDA-Public Use
  Company Number: None

PATIENT
  Age: 61 Year
  Sex: Male

DRUGS (2)
  1. FENTANYL [Interacting]
     Active Substance: FENTANYL
     Indication: Pain
     Dosage: 615 MICROGRAM, QD
     Route: 062
     Dates: start: 2018
  2. MORPHINE [Interacting]
     Active Substance: MORPHINE
     Indication: Pain
     Dosage: 80 MILLIGRAM, QD
     Route: 048
     Dates: start: 2018

REACTIONS (3)
  - Product monitoring error [Unknown]
  - Drug dependence [Unknown]
  - Drug interaction [Unknown]

NARRATIVE: CASE EVENT DATE: 20220311
